FAERS Safety Report 5574264-5 (Version None)
Quarter: 2007Q4

REPORT INFORMATION
  Report Type: 
  Country: None (occurrence: None)
  Receive Date: 20071227
  Receipt Date: 20071220
  Transmission Date: 20080405
  Serious: Yes (Other)
  Sender: FDA-Public Use
  Company Number: US-ALLERGAN-0714114US

PATIENT
  Sex: Female

DRUGS (4)
  1. LUMIGAN [Suspect]
     Indication: GLAUCOMA
     Dosage: 1 GTT, QAM
     Route: 047
     Dates: start: 20071001
  2. SYNTHROID [Concomitant]
     Dosage: UNK, QD
     Route: 048
     Dates: start: 19820101
  3. ALPHAGAN [Concomitant]
     Dosage: UNK, QAM
     Route: 047
  4. CALCIUM [Concomitant]
     Dosage: UNK, QD
     Route: 048

REACTIONS (3)
  - DYSARTHRIA [None]
  - HAEMOPTYSIS [None]
  - NASAL DISORDER [None]
